FAERS Safety Report 9343410 (Version 22)
Quarter: 2016Q3

REPORT INFORMATION
  Report Type: Report from Study
  Country: CA (occurrence: CA)
  Receive Date: 20130612
  Receipt Date: 20160807
  Transmission Date: 20161109
  Serious: Yes (Other)
  Sender: FDA-Public Use
  Company Number: CA-ROCHE-1148746

PATIENT
  Age: 54 Year
  Sex: Female
  Weight: 59.02 kg

DRUGS (12)
  1. RITUXAN [Suspect]
     Active Substance: RITUXIMAB
     Route: 042
     Dates: start: 20130508
  2. METHYLPREDNISOLONE. [Suspect]
     Active Substance: METHYLPREDNISOLONE
     Indication: PREMEDICATION
     Route: 042
     Dates: start: 20120426
  3. FOLIC ACID. [Concomitant]
     Active Substance: FOLIC ACID
  4. ASPIRIN. [Concomitant]
     Active Substance: ASPIRIN
     Route: 065
  5. TRAMADOL. [Concomitant]
     Active Substance: TRAMADOL
     Dosage: NOT TAKING WHILE ON OXYCODONE
     Route: 065
  6. RITUXAN [Suspect]
     Active Substance: RITUXIMAB
     Indication: RHEUMATOID ARTHRITIS
     Dosage: MOST RECENT INFUSION: 08/MAY/2013. PREVIOUS DOSEOF RITUXIMAB: 09/JUL/2013.?PREVIOUS DOSE  OF RITUXIM
     Route: 042
     Dates: start: 20120426
  7. ACETAMINOPHEN. [Concomitant]
     Active Substance: ACETAMINOPHEN
     Indication: PREMEDICATION
     Route: 048
     Dates: start: 20130508
  8. REMICADE [Suspect]
     Active Substance: INFLIXIMAB
     Indication: PRODUCT USED FOR UNKNOWN INDICATION
     Route: 065
     Dates: start: 201110, end: 201212
  9. NASONEX [Concomitant]
     Active Substance: MOMETASONE FUROATE
  10. TYLENOL WITH CODEINE [Concomitant]
     Active Substance: ACETAMINOPHEN\CODEINE PHOSPHATE
     Dosage: AS NEEDED (NOT TAKING WHILE ON OXYCODONE)
     Route: 065
  11. METHOTREXATE. [Concomitant]
     Active Substance: METHOTREXATE
     Route: 048
  12. DIPHENHYDRAMINE HCL [Concomitant]
     Active Substance: DIPHENHYDRAMINE HYDROCHLORIDE
     Indication: PREMEDICATION
     Route: 048
     Dates: start: 20120426

REACTIONS (65)
  - Head injury [Unknown]
  - Pain in extremity [Recovering/Resolving]
  - Mass [Not Recovered/Not Resolved]
  - Flushing [Unknown]
  - Muscle spasms [Unknown]
  - Body temperature increased [Unknown]
  - Precancerous skin lesion [Not Recovered/Not Resolved]
  - Pain [Unknown]
  - Drug ineffective [Unknown]
  - Cough [Not Recovered/Not Resolved]
  - Peripheral swelling [Not Recovered/Not Resolved]
  - Viral infection [Recovering/Resolving]
  - Peripheral swelling [Recovered/Resolved]
  - Headache [Not Recovered/Not Resolved]
  - Increased tendency to bruise [Not Recovered/Not Resolved]
  - Sputum discoloured [Not Recovered/Not Resolved]
  - Procedural pain [Unknown]
  - Vomiting [Unknown]
  - Folliculitis [Recovering/Resolving]
  - Epistaxis [Unknown]
  - Hepatocellular injury [Not Recovered/Not Resolved]
  - Hypoaesthesia [Not Recovered/Not Resolved]
  - Peripheral coldness [Recovered/Resolved]
  - Joint swelling [Not Recovered/Not Resolved]
  - Pain in extremity [Recovering/Resolving]
  - Nasal dryness [Unknown]
  - Arthralgia [Unknown]
  - Tinnitus [Unknown]
  - Benign neoplasm [Not Recovered/Not Resolved]
  - Breath sounds absent [Unknown]
  - Muscle spasms [Not Recovered/Not Resolved]
  - Presyncope [Unknown]
  - Pulmonary congestion [Recovering/Resolving]
  - Gait disturbance [Recovering/Resolving]
  - Muscle spasms [Not Recovered/Not Resolved]
  - Weight increased [Not Recovered/Not Resolved]
  - Hypotension [Unknown]
  - Fall [Unknown]
  - Back pain [Not Recovered/Not Resolved]
  - Haematochezia [Unknown]
  - Body temperature increased [Recovered/Resolved]
  - Pyrexia [Recovered/Resolved]
  - Headache [Unknown]
  - Cold sweat [Recovered/Resolved]
  - Vomiting [Unknown]
  - Blood pressure decreased [Unknown]
  - Ill-defined disorder [Unknown]
  - Pain in extremity [Not Recovered/Not Resolved]
  - Erythema [Recovering/Resolving]
  - Peripheral swelling [Recovering/Resolving]
  - Upper-airway cough syndrome [Not Recovered/Not Resolved]
  - Ligament rupture [Unknown]
  - Syncope [Unknown]
  - Fatigue [Not Recovered/Not Resolved]
  - Joint range of motion decreased [Unknown]
  - Nausea [Unknown]
  - Rhinorrhoea [Unknown]
  - Diarrhoea [Unknown]
  - Breath sounds abnormal [Recovered/Resolved]
  - Pain [Not Recovered/Not Resolved]
  - Skin ulcer [Recovered/Resolved]
  - Rheumatoid arthritis [Unknown]
  - Chest discomfort [Unknown]
  - Chest pain [Unknown]
  - Blood pressure increased [Unknown]

NARRATIVE: CASE EVENT DATE: 2012
